FAERS Safety Report 5036829-9 (Version None)
Quarter: 2006Q2

REPORT INFORMATION
  Report Type: 
  Country: None (occurrence: None)
  Receive Date: 20060623
  Receipt Date: 20060609
  Transmission Date: 20061013
  Serious: Yes (Hospitalization)
  Sender: FDA-Public Use
  Company Number: 2006074315

PATIENT
  Age: 87 Year
  Sex: Male
  Weight: 57 kg

DRUGS (4)
  1. FELDENE [Suspect]
     Indication: BACK PAIN
     Dosage: 20 MG (20 MG EVERY DAY), INTRAMUSCULAR
     Route: 030
     Dates: start: 20060301, end: 20060306
  2. BRONCHOKOD (CARBOCISTEINE) [Suspect]
     Indication: TRACHEOBRONCHITIS
     Dosage: ORAL
     Route: 048
     Dates: start: 20060321, end: 20060326
  3. AUGMENTIN '125' [Suspect]
     Indication: TRACHEOBRONCHITIS
     Dosage: 2 GRAM (2 GRAM, INTERVAL: EVERY DAY) ORAL
     Route: 048
     Dates: start: 20060321, end: 20060326
  4. ACETAMINOPHEN [Suspect]
     Indication: TRACHEOBRONCHITIS
     Dosage: 4 GRAM (4 GRAM, INTERVAL: EVERY DAY) ORAL
     Route: 048
     Dates: start: 20060321, end: 20060326

REACTIONS (2)
  - CYTOLYTIC HEPATITIS [None]
  - RENAL FAILURE [None]
